FAERS Safety Report 7396831-9 (Version None)
Quarter: 2011Q1

REPORT INFORMATION
  Report Type: 
  Country: None (occurrence: None)
  Receive Date: 20110331
  Receipt Date: 20110331
  Transmission Date: 20110831
  Serious: No
  Sender: FDA-Public Use
  Company Number: None

PATIENT
  Age: 83 Year
  Sex: Male
  Weight: 90.7194 kg

DRUGS (14)
  1. SYNTHROID [Concomitant]
  2. HYDROCORTISONE [Concomitant]
  3. WARFARIN [Concomitant]
  4. DILTIAZEM [Concomitant]
  5. DIGOXIN [Concomitant]
  6. FAMOTIDINE [Concomitant]
  7. FUROSEMIDE [Concomitant]
  8. CEFEPIME [Concomitant]
  9. METOPROLOL TARTRATE [Concomitant]
  10. FLUCONAZOLE [Concomitant]
  11. LEVAQUIN [Suspect]
     Indication: PNEUMONIA
     Dosage: 750 MG Q24H IV
     Route: 042
     Dates: start: 20110114, end: 20110123
  12. POTASSIUM CHLORIDE [Concomitant]
  13. NYSTATIN [Concomitant]
  14. SPIRONOLACTONE [Concomitant]

REACTIONS (1)
  - TENDON RUPTURE [None]
